FAERS Safety Report 4705936-X (Version None)
Quarter: 2005Q2

REPORT INFORMATION
  Report Type: 
  Country: None (occurrence: None)
  Receive Date: 20050629
  Receipt Date: 20050622
  Transmission Date: 20051028
  Serious: Yes (Other)
  Sender: FDA-Public Use
  Company Number: 2005092295

PATIENT
  Age: 35 Year
  Sex: Female

DRUGS (1)
  1. NEURONTIN [Suspect]
     Indication: ANXIETY DISORDER

REACTIONS (6)
  - ANXIETY DISORDER [None]
  - DRUG INEFFECTIVE [None]
  - INTENTIONAL MISUSE [None]
  - OVERDOSE [None]
  - PHYSICAL ASSAULT [None]
  - SUICIDE ATTEMPT [None]
